FAERS Safety Report 11572711 (Version 1)
Quarter: 2015Q3

REPORT INFORMATION
  Report Type: Spontaneous
  Country: DK (occurrence: US)
  Receive Date: 20150929
  Receipt Date: 20150929
  Transmission Date: 20151125
  Serious: Yes (Other)
  Sender: FDA-Public Use
  Company Number: US-FRI-1000079852

PATIENT
  Age: 68 Year
  Sex: Female

DRUGS (7)
  1. BRINTELLIX [Suspect]
     Active Substance: VORTIOXETINE HYDROBROMIDE
     Indication: ANXIETY
     Dosage: 5 MG, QD
     Route: 048
     Dates: start: 20150905, end: 20150913
  2. TRAZODONE [Suspect]
     Active Substance: TRAZODONE HYDROCHLORIDE
     Indication: PRODUCT USED FOR UNKNOWN INDICATION
     Dosage: UNK
     Route: 065
     Dates: start: 20150905
  3. CITALOPRAM [Suspect]
     Active Substance: CITALOPRAM HYDROBROMIDE
     Indication: PRODUCT USED FOR UNKNOWN INDICATION
     Dosage: 20 MG, UNK
     Route: 065
     Dates: end: 20150905
  4. BRINTELLIX [Suspect]
     Active Substance: VORTIOXETINE HYDROBROMIDE
  5. CITALOPRAM [Suspect]
     Active Substance: CITALOPRAM HYDROBROMIDE
     Dosage: 10 UNK,
     Route: 065
     Dates: start: 20150905
  6. CLONAZEPAM. [Concomitant]
     Active Substance: CLONAZEPAM
     Indication: ANXIETY
     Dosage: 1 MG, UNK
     Route: 065
  7. LUNESTA [Concomitant]
     Active Substance: ESZOPICLONE
     Indication: INSOMNIA
     Dosage: 3 MG, UNK
     Route: 065

REACTIONS (8)
  - Logorrhoea [Not Recovered/Not Resolved]
  - Insomnia [Not Recovered/Not Resolved]
  - Dry eye [Not Recovered/Not Resolved]
  - Drug interaction [Recovered/Resolved]
  - Agitation [Not Recovered/Not Resolved]
  - Corneal abrasion [Not Recovered/Not Resolved]
  - Serotonin syndrome [Unknown]
  - Arthralgia [Unknown]

NARRATIVE: CASE EVENT DATE: 201509
